FAERS Safety Report 25071202 (Version 2)
Quarter: 2025Q1

REPORT INFORMATION
  Report Type: Spontaneous
  Country: ZA (occurrence: ZA)
  Receive Date: 20250312
  Receipt Date: 20250320
  Transmission Date: 20250409
  Serious: Yes (Hospitalization, Other)
  Sender: SANOFI AVENTIS
  Company Number: ZA-MLMSERVICE-20250303-PI435071-00271-1

PATIENT
  Age: 26 Year
  Sex: Female

DRUGS (8)
  1. CEFTRIAXONE [Suspect]
     Active Substance: CEFTRIAXONE
     Indication: Pneumonia
     Dosage: 1 G, QD
     Route: 042
     Dates: start: 2023, end: 2023
  2. CEFTRIAXONE [Suspect]
     Active Substance: CEFTRIAXONE
     Indication: Fusarium infection
     Dosage: 2 G, QD
  3. CEFTRIAXONE [Suspect]
     Active Substance: CEFTRIAXONE
     Indication: Prosthetic valve endocarditis
  4. CEFTRIAXONE [Suspect]
     Active Substance: CEFTRIAXONE
     Indication: Fungal endocarditis
  5. CEFTRIAXONE [Suspect]
     Active Substance: CEFTRIAXONE
     Indication: Lung abscess
  6. PREDNISONE [Suspect]
     Active Substance: PREDNISONE
     Indication: Pneumonia
     Route: 048
     Dates: start: 20231222, end: 2024
  7. PIPERACILLIN SODIUM\TAZOBACTAM SODIUM [Suspect]
     Active Substance: PIPERACILLIN SODIUM\TAZOBACTAM SODIUM
     Indication: Pneumonia
     Dosage: 4.5 G, TID
     Route: 042
     Dates: start: 2023, end: 2023
  8. AMIKACIN [Suspect]
     Active Substance: AMIKACIN
     Indication: Pneumonia
     Dosage: 750 MG, QD
     Route: 042
     Dates: start: 2023, end: 2023

REACTIONS (10)
  - Fungal endocarditis [Recovered/Resolved]
  - Fusarium infection [Recovered/Resolved]
  - Prosthetic valve endocarditis [Recovered/Resolved]
  - Rash papular [Recovered/Resolved]
  - Skin lesion [Recovered/Resolved]
  - Pyrexia [Recovered/Resolved]
  - Granuloma [Recovered/Resolved]
  - Lung abscess [Recovered/Resolved]
  - Rales [Recovered/Resolved]
  - Infectious pleural effusion [Recovered/Resolved]

NARRATIVE: CASE EVENT DATE: 20240101
